FAERS Safety Report 23232356 (Version 1)
Quarter: 2023Q4

REPORT INFORMATION
  Report Type: Spontaneous
  Country: US (occurrence: US)
  Receive Date: 20231127
  Receipt Date: 20231127
  Transmission Date: 20240109
  Serious: No
  Sender: FDA-Public Use
  Company Number: US-drreddys-SPO/USA/23/0183531

PATIENT
  Sex: Female

DRUGS (1)
  1. LEVOTHYROXINE SODIUM [Suspect]
     Active Substance: LEVOTHYROXINE SODIUM
     Indication: Congenital hyperthyroidism
     Dosage: UNTIL AGE 5 YEARS OLD

REACTIONS (2)
  - Blood thyroid stimulating hormone decreased [Unknown]
  - Product use in unapproved indication [Unknown]
